FAERS Safety Report 6327798-X (Version None)
Quarter: 2009Q3

REPORT INFORMATION
  Report Type: 
  Country: None (occurrence: None)
  Receive Date: 20090824
  Receipt Date: 20090811
  Transmission Date: 20100115
  Serious: Yes (Other)
  Sender: FDA-Public Use
  Company Number: CIP09002223

PATIENT
  Age: 72 Year
  Sex: Female

DRUGS (15)
  1. ACTONEL [Suspect]
     Dosage: 35 MG ONCE A WEEK, ORAL
     Route: 048
     Dates: start: 20050101, end: 20090401
  2. NABUMETONE [Concomitant]
  3. VICODIN ES [Concomitant]
  4. PREVACID [Concomitant]
  5. ZANTAC [Concomitant]
  6. PAMELOR [Concomitant]
  7. FLEXERIL /00428402/ (CYCLOBENZAPRINE HYDROCHLORIDE) [Concomitant]
  8. ASPIRIN [Concomitant]
  9. NIASPAN [Concomitant]
  10. VITAMINS NOS (VITAMINS NOS) [Concomitant]
  11. AUGMENTIN /00756801/ (AMOXICILLIN SODIUM, CLAVULANATE POTASSIUM) [Concomitant]
  12. DIOVAN [Concomitant]
  13. FERROUS SULFATE TAB [Concomitant]
  14. NASONEX [Concomitant]
  15. MUCINEX [Concomitant]

REACTIONS (2)
  - MEDICAL DEVICE COMPLICATION [None]
  - POST PROCEDURAL COMPLICATION [None]
